FAERS Safety Report 18663783 (Version 1)
Quarter: 2020Q4

REPORT INFORMATION
  Report Type: Spontaneous
  Country: JP (occurrence: JP)
  Receive Date: 20201225
  Receipt Date: 20201225
  Transmission Date: 20210114
  Serious: Yes (Other)
  Sender: FDA-Public Use
  Company Number: JP-ASTRAZENECA-2020SF46395

PATIENT
  Age: 76 Year
  Sex: Female

DRUGS (4)
  1. GLYCYRRHIZA POWDER COMBINED DRUG [Concomitant]
     Dosage: DOSE UNKNOWN
     Route: 065
  2. NEXIUM [Suspect]
     Active Substance: ESOMEPRAZOLE MAGNESIUM
     Indication: GASTROOESOPHAGEAL REFLUX DISEASE
     Route: 048
     Dates: start: 202010, end: 2020
  3. GASLON [Concomitant]
     Active Substance: IRSOGLADINE MALEATE
     Dosage: DOSE UNKNOWN
     Route: 065
  4. NEXIUM [Suspect]
     Active Substance: ESOMEPRAZOLE MAGNESIUM
     Indication: GASTROOESOPHAGEAL REFLUX DISEASE
     Dosage: 20.0MG UNKNOWN
     Route: 048
     Dates: start: 2020

REACTIONS (3)
  - Pancreatic carcinoma metastatic [Unknown]
  - Dehydration [Unknown]
  - Metastases to biliary tract [Unknown]

NARRATIVE: CASE EVENT DATE: 2020
